FAERS Safety Report 5947850-8 (Version None)
Quarter: 2008Q4

REPORT INFORMATION
  Report Type: 
  Country: None (occurrence: None)
  Receive Date: 20081111
  Receipt Date: 20081028
  Transmission Date: 20090506
  Serious: Yes (Hospitalization)
  Sender: FDA-Public Use
  Company Number: US-SOLVAY-00208005209

PATIENT
  Age: 17995 Day
  Sex: Female
  Weight: 101.4 kg

DRUGS (3)
  1. PANCRELIPASE DELAYED RELEASE CAPSULES [Suspect]
     Indication: PANCREATITIS CHRONIC
     Dosage: DAILY DOSE: 4 CAPSULES (ONE CAPSULE PER MEAL/SNACK)
     Route: 048
     Dates: start: 20080506
  2. RUN IN PHASE [Suspect]
     Indication: PANCREATITIS CHRONIC
     Dosage: DAILY DOSE:  UNKNOWN
     Route: 048
     Dates: start: 20080331, end: 20080428
  3. BLINDED MEDICATION [Suspect]
     Indication: PANCREATITIS CHRONIC
     Dosage: DAILY DOSE:  UNKNOWN
     Route: 048
     Dates: start: 20080429, end: 20080505

REACTIONS (1)
  - PANCREATITIS ACUTE [None]
